FAERS Safety Report 17951735 (Version 8)
Quarter: 2023Q1

REPORT INFORMATION
  Report Type: Spontaneous
  Country: US (occurrence: US)
  Receive Date: 20200626
  Receipt Date: 20230216
  Transmission Date: 20230418
  Serious: Yes (Death, Hospitalization, Other)
  Sender: FDA-Public Use
  Company Number: US-BLUEPRINT MEDICINES CORPORATION-SP-US-2020-000707

PATIENT
  Age: 63 Year
  Sex: Male

DRUGS (12)
  1. AYVAKIT [Suspect]
     Active Substance: AVAPRITINIB
     Indication: Gastrointestinal stromal tumour
     Route: 048
     Dates: start: 20200318
  2. AYVAKIT [Suspect]
     Active Substance: AVAPRITINIB
     Route: 048
     Dates: start: 20200318
  3. AYVAKIT [Suspect]
     Active Substance: AVAPRITINIB
     Route: 048
     Dates: start: 20200320, end: 20200506
  4. AYVAKIT [Suspect]
     Active Substance: AVAPRITINIB
     Route: 048
     Dates: start: 20200402
  5. AYVAKIT [Suspect]
     Active Substance: AVAPRITINIB
     Route: 048
     Dates: start: 20200520
  6. AYVAKIT [Suspect]
     Active Substance: AVAPRITINIB
     Route: 048
     Dates: start: 20200520, end: 20200527
  7. AYVAKIT [Suspect]
     Active Substance: AVAPRITINIB
     Route: 048
     Dates: start: 20200612, end: 20200625
  8. AYVAKIT [Suspect]
     Active Substance: AVAPRITINIB
     Route: 048
     Dates: start: 20200804, end: 20200825
  9. AYVAKIT [Suspect]
     Active Substance: AVAPRITINIB
     Route: 065
     Dates: start: 202003
  10. OLANZAPINE [Concomitant]
     Active Substance: OLANZAPINE
     Indication: Product used for unknown indication
     Route: 065
  11. OLANZAPINE [Concomitant]
     Active Substance: OLANZAPINE
     Indication: Bipolar I disorder
     Route: 065
     Dates: start: 201912
  12. OLANZAPINE [Concomitant]
     Active Substance: OLANZAPINE
     Indication: Agitation
     Route: 065

REACTIONS (36)
  - Parkinsonism [Fatal]
  - Memory impairment [Not Recovered/Not Resolved]
  - Cognitive disorder [Recovered/Resolved]
  - Pneumonia aspiration [Unknown]
  - Dysphagia [Not Recovered/Not Resolved]
  - Encephalopathy [Unknown]
  - Urinary tract infection [Not Recovered/Not Resolved]
  - Parkinson^s disease [Unknown]
  - Gait disturbance [Unknown]
  - Patient elopement [Recovered/Resolved]
  - Salivary hypersecretion [Unknown]
  - Drug intolerance [Unknown]
  - Hypophagia [Recovered/Resolved]
  - Speech disorder [Not Recovered/Not Resolved]
  - Confusional state [Recovered/Resolved]
  - Blood bilirubin increased [Unknown]
  - Peripheral swelling [Not Recovered/Not Resolved]
  - Weight decreased [Recovered/Resolved]
  - Agitation [Unknown]
  - Dysarthria [Recovered/Resolved]
  - Dysphonia [Unknown]
  - Reduced facial expression [Unknown]
  - Posture abnormal [Unknown]
  - Eye movement disorder [Unknown]
  - Nystagmus [Unknown]
  - Neuropsychiatric symptoms [Unknown]
  - Incontinence [Not Recovered/Not Resolved]
  - Bradykinesia [Unknown]
  - Cogwheel rigidity [Unknown]
  - Tremor [Unknown]
  - Psychotic disorder [Unknown]
  - Balance disorder [Unknown]
  - Autonomic nervous system imbalance [Unknown]
  - Disease progression [Unknown]
  - Vitamin B complex deficiency [Unknown]
  - Paraneoplastic syndrome [Unknown]

NARRATIVE: CASE EVENT DATE: 20200401
